FAERS Safety Report 8954942 (Version 1)
Quarter: 2012Q4

REPORT INFORMATION
  Report Type: 
  Country: CA (occurrence: CA)
  Receive Date: 20121207
  Receipt Date: 20121207
  Transmission Date: 20130627
  Serious: Yes (Hospitalization)
  Sender: FDA-Public Use
  Company Number: CA-ASTRAZENECA-2012SE90326

PATIENT
  Age: 82 Year
  Sex: Male

DRUGS (9)
  1. CRESTOR [Suspect]
     Route: 048
     Dates: start: 2008
  2. PLAVIX [Concomitant]
     Indication: STENT PLACEMENT
     Route: 048
     Dates: start: 201208
  3. RAMIPRIL [Concomitant]
     Route: 048
  4. METOPROLOL [Concomitant]
     Route: 048
  5. ELTROXINE [Concomitant]
     Route: 048
  6. KLITE [Concomitant]
     Route: 048
  7. METFORMIN [Concomitant]
     Route: 048
  8. GLYBURIDE [Concomitant]
     Route: 048
  9. ARTHROTEC [Concomitant]
     Route: 048

REACTIONS (3)
  - Myocardial infarction [Recovered/Resolved]
  - Cough [Unknown]
  - Insomnia [Unknown]
